FAERS Safety Report 9661557 (Version 2)
Quarter: 2013Q4

REPORT INFORMATION
  Report Type: Spontaneous
  Country: US (occurrence: US)
  Receive Date: 20131031
  Receipt Date: 20131031
  Transmission Date: 20140711
  Serious: No
  Sender: FDA-Public Use
  Company Number: US-PURDUE-USA-2010-0055249

PATIENT
  Sex: Male

DRUGS (2)
  1. OXYCONTIN (NDA 22-272) [Suspect]
     Indication: NEUROPATHY PERIPHERAL
     Dosage: 80 MG, QID
     Route: 048
     Dates: start: 20100911
  2. DILAUDID TABLET [Concomitant]
     Indication: BREAKTHROUGH PAIN

REACTIONS (7)
  - Drug withdrawal syndrome [Unknown]
  - Pain [Unknown]
  - Hyperhidrosis [Unknown]
  - Mood swings [Unknown]
  - Anxiety [Unknown]
  - Feeling jittery [Unknown]
  - Drug ineffective [Unknown]
